FAERS Safety Report 11244511 (Version 3)
Quarter: 2015Q3

REPORT INFORMATION
  Report Type: Report from Study
  Country: GB (occurrence: GB)
  Receive Date: 20150707
  Receipt Date: 20150720
  Transmission Date: 20151125
  Serious: Yes (Hospitalization)
  Sender: FDA-Public Use
  Company Number: GB-GLAXOSMITHKLINE-GB2015GSK095577

PATIENT
  Age: 75 Year
  Sex: Male
  Weight: 91 kg

DRUGS (15)
  1. PARACETAMOL [Concomitant]
     Active Substance: ACETAMINOPHEN
     Indication: CHRONIC LYMPHOCYTIC LEUKAEMIA
     Dosage: 1 G, UNK
     Route: 048
     Dates: start: 20150624
  2. ACICLOVIR [Concomitant]
     Active Substance: ACYCLOVIR
     Indication: CHRONIC LYMPHOCYTIC LEUKAEMIA
     Dosage: 400 MG, UNK
     Route: 048
     Dates: start: 20150624, end: 20150625
  3. PLACEBO [Suspect]
     Active Substance: UNSPECIFIED INGREDIENT
     Indication: CHRONIC LYMPHOCYTIC LEUKAEMIA
     Dosage: 150 MG, UNK
     Dates: start: 20150624, end: 20150625
  4. ALLOPURINOL. [Concomitant]
     Active Substance: ALLOPURINOL
  5. PENTASA [Concomitant]
     Active Substance: MESALAMINE
     Indication: PROCTITIS
     Dosage: 1, UNK
     Dates: start: 20150629
  6. OFATUMUMAB [Suspect]
     Active Substance: OFATUMUMAB
     Indication: CHRONIC LYMPHOCYTIC LEUKAEMIA
     Dosage: 1000 MG, CYC
     Route: 042
     Dates: start: 20150624, end: 20150624
  7. AMLODIPINE [Concomitant]
     Active Substance: AMLODIPINE BESYLATE
     Indication: HYPERTENSION
     Dosage: 5 MG, QD
     Route: 048
     Dates: start: 20121210
  8. CHLORAMBUCIL [Suspect]
     Active Substance: CHLORAMBUCIL
     Indication: CHRONIC LYMPHOCYTIC LEUKAEMIA
     Dosage: 22 MG, UNK
     Route: 048
     Dates: start: 20150624, end: 20150625
  9. COTRIMOXAZOLE [Concomitant]
     Active Substance: SULFAMETHOXAZOLE\TRIMETHOPRIM
     Indication: CHRONIC LYMPHOCYTIC LEUKAEMIA
     Dosage: 480 MG, UNK
     Route: 048
     Dates: start: 20150624, end: 20150625
  10. CHLORPHENIRAMINE. [Concomitant]
     Active Substance: CHLORPHENIRAMINE
     Indication: CHRONIC LYMPHOCYTIC LEUKAEMIA
     Dosage: 10 MG, UNK
     Route: 042
     Dates: start: 20150624, end: 20150624
  11. HYDROCORTISONE. [Concomitant]
     Active Substance: HYDROCORTISONE
     Indication: CHRONIC LYMPHOCYTIC LEUKAEMIA
     Dosage: 100 MG, UNK
     Route: 042
     Dates: start: 20150624, end: 20150624
  12. METOCLOPRAMIDE. [Concomitant]
     Active Substance: METOCLOPRAMIDE
     Indication: CHRONIC LYMPHOCYTIC LEUKAEMIA
     Dosage: 10 MG, UNK
     Route: 048
     Dates: start: 20150624, end: 20150625
  13. RAMIPRIL. [Concomitant]
     Active Substance: RAMIPRIL
     Indication: HYPERTENSION
     Dosage: 5 MG, QD
     Route: 048
     Dates: start: 20121210
  14. IDELALISIB [Suspect]
     Active Substance: IDELALISIB
     Indication: CHRONIC LYMPHOCYTIC LEUKAEMIA
     Dosage: 150 MG, UNK
     Route: 048
     Dates: start: 20150624, end: 20150625
  15. G-CSF [Concomitant]
     Active Substance: GRANULOCYTE COLONY-STIMULATING FACTOR NOS

REACTIONS (1)
  - Ill-defined disorder [Recovered/Resolved]

NARRATIVE: CASE EVENT DATE: 20150625
